FAERS Safety Report 7284571-6 (Version None)
Quarter: 2011Q1

REPORT INFORMATION
  Report Type: 
  Country: None (occurrence: None)
  Receive Date: 20110210
  Receipt Date: 20110131
  Transmission Date: 20110831
  Serious: Yes (Hospitalization)
  Sender: FDA-Public Use
  Company Number: US-BIOGENIDEC-2007BI007964

PATIENT
  Age: 60 Year
  Sex: Female
  Weight: 86 kg

DRUGS (3)
  1. AVONEX [Suspect]
     Indication: MULTIPLE SCLEROSIS
     Route: 030
     Dates: start: 19971018, end: 20030101
  2. AVONEX [Suspect]
     Route: 030
     Dates: start: 20030101
  3. ADVAIR [Concomitant]
     Indication: ASTHMA

REACTIONS (18)
  - CARDIAC VENTRICULAR DISORDER [None]
  - DIVERTICULITIS [None]
  - CATARACT [None]
  - DRUG HYPERSENSITIVITY [None]
  - CHRONIC OBSTRUCTIVE PULMONARY DISEASE [None]
  - ASTHMA [None]
  - VOMITING [None]
  - KIDNEY INFECTION [None]
  - CHOLELITHIASIS [None]
  - BLOOD PRESSURE DECREASED [None]
  - OSTEOPOROSIS [None]
  - RESPIRATORY ARREST [None]
  - EYELID PTOSIS [None]
  - MYOCARDIAL INFARCTION [None]
  - CYSTITIS [None]
  - DYSPNOEA [None]
  - PSYCHOMOTOR HYPERACTIVITY [None]
  - MUSCULAR WEAKNESS [None]
